FAERS Safety Report 14212136 (Version 1)
Quarter: 2017Q4

REPORT INFORMATION
  Report Type: Spontaneous
  Country: ES (occurrence: ES)
  Receive Date: 20171121
  Receipt Date: 20171121
  Transmission Date: 20180321
  Serious: Yes (Other)
  Sender: FDA-Public Use
  Company Number: ES-LANNETT COMPANY, INC.-ES-2017LAN001201

PATIENT
  Age: 64 Year
  Sex: Female

DRUGS (2)
  1. ACETAZOLAMIDE. [Suspect]
     Active Substance: ACETAZOLAMIDE
     Indication: INTRAOCULAR PRESSURE INCREASED
     Dosage: UNK
     Route: 048
  2. SULFUR HEXAFLUORIDE [Suspect]
     Active Substance: SULFUR HEXAFLUORIDE
     Indication: KERATOPLASTY
     Dosage: 0.3 ML, (100%)
     Route: 047

REACTIONS (4)
  - Choroidal detachment [Recovered/Resolved]
  - Product preparation error [Unknown]
  - Hypotony of eye [Recovered/Resolved]
  - Lens dislocation [Recovered/Resolved]
